FAERS Safety Report 13615165 (Version 1)
Quarter: 2017Q2

REPORT INFORMATION
  Report Type: Spontaneous
  Country: US (occurrence: US)
  Receive Date: 20170605
  Receipt Date: 20170605
  Transmission Date: 20170830
  Serious: No
  Sender: FDA-Public Use
  Company Number: None

PATIENT
  Age: 61 Year
  Sex: Male

DRUGS (1)
  1. ZEPATIER [Suspect]
     Active Substance: ELBASVIR\GRAZOPREVIR

REACTIONS (6)
  - Gingival bleeding [None]
  - Penile haemorrhage [None]
  - Rectal haemorrhage [None]
  - Joint swelling [None]
  - Therapy cessation [None]
  - Loss of consciousness [None]

NARRATIVE: CASE EVENT DATE: 20170605
